FAERS Safety Report 5470025-6 (Version None)
Quarter: 2007Q3

REPORT INFORMATION
  Report Type: 
  Country: None (occurrence: None)
  Receive Date: 20070927
  Receipt Date: 20070926
  Transmission Date: 20080115
  Serious: Yes (Hospitalization, Other)
  Sender: FDA-Public Use
  Company Number: US-ROXANE LABORATORIES, INC-2007-DE-05720GD

PATIENT
  Age: 51 Year
  Sex: Male

DRUGS (2)
  1. DEXTROMETHORPHAN HYDROBROMIDE [Suspect]
  2. LORAZEPAM [Suspect]

REACTIONS (9)
  - CEREBELLAR SYNDROME [None]
  - COORDINATION ABNORMAL [None]
  - DRUG ABUSER [None]
  - DYSARTHRIA [None]
  - HIP FRACTURE [None]
  - IMPAIRED DRIVING ABILITY [None]
  - MUSCLE SPASMS [None]
  - NYSTAGMUS [None]
  - ROAD TRAFFIC ACCIDENT [None]
